FAERS Safety Report 20695619 (Version 2)
Quarter: 2022Q2

REPORT INFORMATION
  Report Type: Spontaneous
  Country: FI (occurrence: FI)
  Receive Date: 20220411
  Receipt Date: 20220502
  Transmission Date: 20220721
  Serious: Yes (Other)
  Sender: FDA-Public Use
  Company Number: FI-MYLANLABS-2022M1015423

PATIENT
  Sex: Male

DRUGS (21)
  1. TAMSULOSIN [Interacting]
     Active Substance: TAMSULOSIN
     Indication: Pollakiuria
     Dosage: 0.4 MILLIGRAM, QD
  2. TAMSULOSIN [Interacting]
     Active Substance: TAMSULOSIN
     Indication: Urinary hesitation
     Dosage: 0.4 MILLIGRAM, BID
  3. TAMSULOSIN [Interacting]
     Active Substance: TAMSULOSIN
     Indication: Dysuria
     Dosage: 0.8 MILLIGRAM, BID
     Route: 065
  4. TAMSULOSIN [Interacting]
     Active Substance: TAMSULOSIN
     Indication: Urinary retention
     Dosage: 0.4 MILLIGRAM
     Route: 065
  5. TAMSULOSIN [Interacting]
     Active Substance: TAMSULOSIN
     Indication: Dysuria
  6. PANTOPRAZOLE [Interacting]
     Active Substance: PANTOPRAZOLE
     Indication: Gastrooesophageal reflux disease
     Dosage: 40 MILLIGRAM
     Route: 065
  7. ACETAMINOPHEN [Suspect]
     Active Substance: ACETAMINOPHEN
     Indication: Pain
     Dosage: 1 GRAM, PRN
     Route: 065
  8. ACETAMINOPHEN [Suspect]
     Active Substance: ACETAMINOPHEN
     Indication: Analgesic therapy
  9. ACETAMINOPHEN\CODEINE PHOSPHATE [Interacting]
     Active Substance: ACETAMINOPHEN\CODEINE PHOSPHATE
     Indication: Pain
     Dosage: UNK, PRN
     Route: 065
  10. CODEINE [Interacting]
     Active Substance: CODEINE
     Indication: Product used for unknown indication
     Dosage: 500MG/30MG
     Route: 065
  11. LEUPROLIDE ACETATE [Suspect]
     Active Substance: LEUPROLIDE ACETATE
     Indication: Prostate cancer
     Dosage: 45 MILLIGRAM, EVERY HALF A YEAR
     Route: 058
  12. LEUPROLIDE ACETATE [Suspect]
     Active Substance: LEUPROLIDE ACETATE
     Dosage: 45 MILLIGRAM, Q6MONTHS
     Route: 059
  13. RIFAMPIN [Interacting]
     Active Substance: RIFAMPIN
     Indication: Tuberculosis
     Dosage: 600 MILLIGRAM, QD
     Route: 048
  14. RIFAMPIN [Interacting]
     Active Substance: RIFAMPIN
     Indication: Mycobacterium tuberculosis complex test positive
  15. RABEPRAZOLE [Interacting]
     Active Substance: RABEPRAZOLE
     Indication: Gastrooesophageal reflux disease
     Dosage: 20 MILLIGRAM, QD
     Route: 065
  16. ETHAMBUTOL [Concomitant]
     Active Substance: ETHAMBUTOL HYDROCHLORIDE
     Indication: Tuberculosis
     Dosage: 500 MILLIGRAM, TID (Q8H)
     Route: 048
  17. ETHAMBUTOL [Concomitant]
     Active Substance: ETHAMBUTOL HYDROCHLORIDE
     Indication: Mycobacterium tuberculosis complex test positive
     Dosage: 1500 MILLIGRAM, QD (1500 MILLIGRAM DAILY )
  18. ISONIAZID [Concomitant]
     Active Substance: ISONIAZID
     Indication: Tuberculosis
     Dosage: 300 MILLIGRAM, QD (300 MILLIGRAM DAILY  )
     Route: 048
  19. ISONIAZID [Concomitant]
     Active Substance: ISONIAZID
     Indication: Mycobacterium tuberculosis complex test positive
  20. PYRAZINAMIDE [Concomitant]
     Active Substance: PYRAZINAMIDE
     Indication: Tuberculosis
     Dosage: 500 MILLIGRAM
     Route: 048
  21. PYRAZINAMIDE [Concomitant]
     Active Substance: PYRAZINAMIDE
     Indication: Mycobacterium tuberculosis complex test positive

REACTIONS (9)
  - Enzyme induction [Unknown]
  - Drug ineffective [Unknown]
  - Drug interaction [Unknown]
  - Off label use [Unknown]
  - Pollakiuria [Recovered/Resolved]
  - Urinary hesitation [Recovered/Resolved]
  - Dysuria [Recovered/Resolved]
  - Musculoskeletal chest pain [Unknown]
  - Abdominal mass [Unknown]
